FAERS Safety Report 4897859-0 (Version None)
Quarter: 2006Q1

REPORT INFORMATION
  Report Type: 
  Country: None (occurrence: None)
  Receive Date: 20060201
  Receipt Date: 20060119
  Transmission Date: 20060701
  Serious: Yes (Hospitalization)
  Sender: FDA-Public Use
  Company Number: FR-GLAXOSMITHKLINE-B0407106A

PATIENT
  Age: 88 Year
  Sex: Female

DRUGS (15)
  1. DEROXAT [Suspect]
     Dosage: 20MG PER DAY
     Route: 048
  2. PREVISCAN [Suspect]
     Dosage: 10MG PER DAY
     Route: 048
     Dates: end: 20051216
  3. NEURONTIN [Suspect]
     Dosage: 100MG THREE TIMES PER DAY
     Route: 048
     Dates: end: 20051222
  4. AERIUS [Suspect]
     Dosage: 1UNIT PER DAY
     Route: 048
     Dates: start: 20051214, end: 20051222
  5. OXYNORM [Suspect]
     Dosage: 1CAP PER DAY
     Route: 048
     Dates: end: 20051222
  6. AUGMENTIN '125' [Concomitant]
     Route: 065
     Dates: start: 20051201
  7. COVERSYL [Concomitant]
     Route: 048
  8. FUROSEMIDE [Concomitant]
     Route: 065
  9. IKOREL [Concomitant]
     Route: 065
  10. TRINIPATCH [Concomitant]
     Route: 062
  11. ISKEDYL [Concomitant]
     Route: 048
  12. DOLIPRANE [Concomitant]
     Route: 065
  13. LOVENOX [Concomitant]
     Route: 065
  14. AMYCOR [Concomitant]
     Route: 065
     Dates: start: 20051201
  15. ANTITETANIC VACCINE [Concomitant]
     Route: 065
     Dates: start: 20051201

REACTIONS (7)
  - CONDITION AGGRAVATED [None]
  - CONFUSIONAL STATE [None]
  - FACIAL BONES FRACTURE [None]
  - FALL [None]
  - HAEMATOMA [None]
  - HALLUCINATION, VISUAL [None]
  - SOMNOLENCE [None]
